APPROVED DRUG PRODUCT: SEROQUEL
Active Ingredient: QUETIAPINE FUMARATE
Strength: EQ 400MG BASE
Dosage Form/Route: TABLET;ORAL
Application: N020639 | Product #006 | TE Code: AB
Applicant: CHEPLAPHARM ARZNEIMITTEL GMBH
Approved: Oct 4, 2005 | RLD: Yes | RS: No | Type: RX